FAERS Safety Report 7935890-9 (Version None)
Quarter: 2011Q4

REPORT INFORMATION
  Report Type: 
  Country: None (occurrence: None)
  Receive Date: 20111123
  Receipt Date: 20111121
  Transmission Date: 20120403
  Serious: Yes (Death)
  Sender: FDA-Public Use
  Company Number: KR-BAYER-2011-111761

PATIENT
  Age: 67 Year
  Sex: Male
  Weight: 57 kg

DRUGS (11)
  1. PROPRANOLOL [Concomitant]
     Indication: HEPATITIS B
     Dosage: 40 MG, QD
     Route: 048
     Dates: start: 20101129
  2. ONDANSETRON [Concomitant]
     Indication: HEPATITIS B
     Dosage: 8 MG, QD
     Route: 048
     Dates: start: 20110721, end: 20110804
  3. GASMOTIN [Concomitant]
     Indication: HEPATITIS B
     Dosage: 5 MG, QD
     Route: 048
     Dates: start: 20101129
  4. MEGESTROL ACETATE [Concomitant]
     Indication: HEPATITIS B
     Dosage: 40 MG/ML, QD
     Route: 048
     Dates: start: 20110804, end: 20110817
  5. MONILAC [Concomitant]
     Indication: HEPATITIS B
     Dosage: DAILY DOSE 20 MG
     Route: 048
     Dates: start: 20110721, end: 20110806
  6. BIPHENYL DICARBOXYLATE [Concomitant]
     Indication: HEPATITIS B
     Dosage: 25 MG, QD
     Route: 048
     Dates: start: 20101129
  7. REBAMIPIDE [Concomitant]
     Indication: HEPATITIS B
     Dosage: 100 MG, UNK
     Route: 048
     Dates: start: 20101129
  8. SORAFENIB (RAF KINASE INHIBITOR) [Suspect]
     Indication: HEPATIC NEOPLASM MALIGNANT
     Dosage: DAILY DOSE 800 MG
     Route: 048
     Dates: start: 20110803
  9. OXYCONTIN [Concomitant]
     Indication: HEPATITIS B
     Dosage: 20 MG, QD
     Route: 048
     Dates: start: 20100725
  10. NEXIUM [Concomitant]
     Indication: HEPATITIS B
     Dosage: 40 MG, QD
     Route: 048
     Dates: start: 20110602, end: 20110806
  11. DOMPERIDONE MALEATE [Concomitant]
     Indication: HEPATITIS B
     Dosage: 10 MG, QD
     Route: 048
     Dates: start: 20110708, end: 20110806

REACTIONS (1)
  - HEPATIC FAILURE [None]
